FAERS Safety Report 21497363 (Version 1)
Quarter: 2022Q4

REPORT INFORMATION
  Report Type: Spontaneous
  Country: US (occurrence: None)
  Receive Date: 20221021
  Receipt Date: 20221021
  Transmission Date: 20230113
  Serious: Yes (Other)
  Sender: FDA-Public Use
  Company Number: None

PATIENT
  Sex: Female

DRUGS (16)
  1. ENBREL [Suspect]
     Active Substance: ETANERCEPT
     Indication: Rheumatoid arthritis
     Dosage: FREQUENCY : AS DIRECTED;?
     Route: 058
     Dates: start: 20200930
  2. ALBUTEROL AER HFA [Concomitant]
  3. ARIPIPRAZOLE [Concomitant]
     Active Substance: ARIPIPRAZOLE
  4. AZITHROMYCIN TAB [Concomitant]
  5. CYANOCOBALAM INJ [Concomitant]
  6. CYCLOBENZAPR TAB [Concomitant]
  7. DULOXETINE [Concomitant]
     Active Substance: DULOXETINE
  8. GABAPENTIN [Concomitant]
     Active Substance: GABAPENTIN
  9. HYDROCO/APAP TAB [Concomitant]
  10. HYDROXYZINE HYDROCHLORIDE [Concomitant]
     Active Substance: HYDROXYZINE HYDROCHLORIDE
  11. HYDROXYZINE PAMOATE [Concomitant]
     Active Substance: HYDROXYZINE PAMOATE
  12. LEFLUNOMIDE [Concomitant]
  13. OLANZAPINE [Concomitant]
     Active Substance: OLANZAPINE
  14. TRIAMCINOLON CRE [Concomitant]
  15. VENLAFAXINE CAP [Concomitant]
  16. WELLBUTRIN TAB [Concomitant]

REACTIONS (1)
  - Surgery [None]
